FAERS Safety Report 21358410 (Version 1)
Quarter: 2022Q3

REPORT INFORMATION
  Report Type: Spontaneous
  Country: GB (occurrence: None)
  Receive Date: 20220921
  Receipt Date: 20220921
  Transmission Date: 20221027
  Serious: Yes (Life-Threatening, Hospitalization)
  Sender: FDA-Public Use
  Company Number: 2022A320099

PATIENT
  Age: 56 Year
  Sex: Female
  Weight: 66.4 kg

DRUGS (11)
  1. DAPAGLIFLOZIN [Suspect]
     Active Substance: DAPAGLIFLOZIN
     Route: 048
  2. CETRABEN [Concomitant]
     Dosage: USE 3-4 TIMES A DAY (USE AS A MOISTURISER)
     Dates: start: 20220628, end: 20220810
  3. MICONAZOLE [Concomitant]
     Active Substance: MICONAZOLE
     Dosage: APPLY THINLY AS DIRECTED
     Dates: start: 20220628, end: 20220810
  4. LANSOPRAZOLE [Concomitant]
     Active Substance: LANSOPRAZOLE
     Dosage: 15
  5. GLICLAZIDE [Concomitant]
     Active Substance: GLICLAZIDE
     Dosage: 40 , WITH BREAKFAST
     Dates: start: 20220819
  6. ATORVASTATIN [Concomitant]
     Active Substance: ATORVASTATIN
     Dosage: 20
  7. TERBINAFINE [Concomitant]
     Active Substance: TERBINAFINE
     Dosage: 1, APPLY THINLY AS DIRECTED
     Dates: start: 20220825
  8. OLANZAPINE [Concomitant]
     Active Substance: OLANZAPINE
     Dosage: 7.5
  9. HYDROCORTISONE [Concomitant]
     Active Substance: HYDROCORTISONE
     Dosage: 1, APPLY THINLY AS DIRECTED
     Dates: start: 20220628, end: 20220810
  10. CLOPIDOGREL [Concomitant]
     Active Substance: CLOPIDOGREL BISULFATE
     Dosage: 75
  11. SERTRALINE [Concomitant]
     Active Substance: SERTRALINE HYDROCHLORIDE
     Dosage: 100

REACTIONS (3)
  - Fungaemia [Unknown]
  - Sepsis [Recovering/Resolving]
  - Genital candidiasis [Recovering/Resolving]
